FAERS Safety Report 4908986-3 (Version None)
Quarter: 2006Q1

REPORT INFORMATION
  Report Type: 
  Country: None (occurrence: None)
  Receive Date: 20060210
  Receipt Date: 20060210
  Transmission Date: 20060701
  Serious: Yes (Hospitalization)
  Sender: FDA-Public Use
  Company Number: None

PATIENT
  Age: 56 Year
  Sex: Male
  Weight: 119.5 kg

DRUGS (2)
  1. IBUPROFEN [Suspect]
     Indication: PAIN
  2. ASPIRIN [Suspect]
     Indication: PAIN

REACTIONS (3)
  - ANAEMIA [None]
  - LARGE INTESTINAL ULCER [None]
  - UPPER GASTROINTESTINAL HAEMORRHAGE [None]
